FAERS Safety Report 6181970-0 (Version None)
Quarter: 2009Q2

REPORT INFORMATION
  Report Type: 
  Country: None (occurrence: None)
  Receive Date: 20090505
  Receipt Date: 20090423
  Transmission Date: 20091009
  Serious: Yes (Other)
  Sender: FDA-Public Use
  Company Number: 234511K09USA

PATIENT
  Age: 39 Year
  Sex: Female

DRUGS (9)
  1. REBIF [Suspect]
     Indication: MULTIPLE SCLEROSIS
     Dosage: 44 MCG, 3 IN 1 WEEKS, SUBCUTANEOUS
     Route: 058
     Dates: start: 20060420
  2. MULTIVITAMIN (MULTIVITAMIN /00831701/) [Concomitant]
  3. ALEVE (CAPLET) [Concomitant]
  4. LEXAPRO [Concomitant]
  5. PROVIGIL [Concomitant]
  6. NEURONTIN [Concomitant]
  7. AZATHIOPRINE [Concomitant]
  8. KLONOPIN [Concomitant]
  9. XANAX [Concomitant]

REACTIONS (4)
  - CHEST PAIN [None]
  - ELECTROCARDIOGRAM ABNORMAL [None]
  - HEART RATE IRREGULAR [None]
  - REFUSAL OF TREATMENT BY PATIENT [None]
